FAERS Safety Report 19718874 (Version 1)
Quarter: 2021Q3

REPORT INFORMATION
  Report Type: Spontaneous
  Country: US (occurrence: US)
  Receive Date: 20210819
  Receipt Date: 20210819
  Transmission Date: 20211014
  Serious: Yes (Other)
  Sender: FDA-Public Use
  Company Number: US-GLAXOSMITHKLINE-US2021GSK174542

PATIENT
  Sex: Female

DRUGS (2)
  1. ZANTAC [Suspect]
     Active Substance: RANITIDINE HYDROCHLORIDE
     Indication: EAR DISORDER
     Dosage: UNK UNK, QD
     Route: 065
     Dates: start: 201401, end: 201401
  2. ZANTAC [Suspect]
     Active Substance: RANITIDINE HYDROCHLORIDE
     Indication: EAR DISORDER
     Dosage: UNK UNK, QD
     Route: 065
     Dates: start: 201401, end: 201401

REACTIONS (1)
  - Neoplasm malignant [Unknown]
